FAERS Safety Report 7082857-1 (Version None)
Quarter: 2010Q4

REPORT INFORMATION
  Report Type: 
  Country: None (occurrence: None)
  Receive Date: 20101104
  Receipt Date: 20101101
  Transmission Date: 20110411
  Serious: Yes (Hospitalization, Other)
  Sender: FDA-Public Use
  Company Number: US-AMGEN-QUU372572

PATIENT

DRUGS (4)
  1. ENBREL [Suspect]
     Indication: PSORIATIC ARTHROPATHY
     Dosage: 50 MG, QWK
     Route: 058
     Dates: start: 20061121
  2. ENBREL [Suspect]
     Indication: PSORIASIS
     Dates: start: 20061121
  3. ENBREL [Suspect]
  4. HYDROXYCHLOROQUINE [Concomitant]
     Dosage: 200 MG, BID
     Route: 048

REACTIONS (12)
  - ARTHRALGIA [None]
  - CATARACT [None]
  - DIARRHOEA [None]
  - NAUSEA [None]
  - ONYCHOCLASIS [None]
  - OSTEOARTHRITIS [None]
  - PRECANCEROUS SKIN LESION [None]
  - PROCEDURAL PAIN [None]
  - PSORIASIS [None]
  - SINUSITIS [None]
  - SKIN CANCER [None]
  - SKIN EXFOLIATION [None]
